FAERS Safety Report 9404331 (Version 1)
Quarter: 2013Q3

REPORT INFORMATION
  Report Type: Spontaneous
  Country: US (occurrence: None)
  Receive Date: 20130715
  Receipt Date: 20130715
  Transmission Date: 20140515
  Serious: Yes (Death, Other)
  Sender: FDA-Public Use
  Company Number: C-13-065

PATIENT
  Sex: 0

DRUGS (2)
  1. INDOMETHACIN [Suspect]
     Indication: GOUT
     Route: 048
  2. RILONACEPT [Concomitant]

REACTIONS (7)
  - Hypertensive cardiomyopathy [None]
  - Myocardial infarction [None]
  - Colitis ulcerative [None]
  - Tubulointerstitial nephritis [None]
  - Pyoderma gangrenosum [None]
  - Headache [None]
  - Dizziness [None]
